FAERS Safety Report 5775743-8 (Version None)
Quarter: 2008Q2

REPORT INFORMATION
  Report Type: 
  Country: None (occurrence: None)
  Receive Date: 20080612
  Receipt Date: 20080606
  Transmission Date: 20081010
  Serious: Yes (Life-Threatening, Hospitalization)
  Sender: FDA-Public Use
  Company Number: CERZ-1000245

PATIENT
  Age: 19 Year
  Sex: Female
  Weight: 30 kg

DRUGS (1)
  1. CEREZYME [Suspect]
     Indication: GAUCHER'S DISEASE
     Dosage: 1800 U, INTRAVENOUS
     Route: 042
     Dates: start: 20070726, end: 20080401

REACTIONS (4)
  - ACINETOBACTER INFECTION [None]
  - INFUSION SITE INFECTION [None]
  - SEPSIS [None]
  - STAPHYLOCOCCAL INFECTION [None]
